FAERS Safety Report 5505562-9 (Version None)
Quarter: 2007Q4

REPORT INFORMATION
  Report Type: 
  Country: None (occurrence: None)
  Receive Date: 20071102
  Receipt Date: 20071022
  Transmission Date: 20080405
  Serious: Yes (Other)
  Sender: FDA-Public Use
  Company Number: JP-PFIZER INC-2007088863

PATIENT
  Age: 34 Year
  Sex: Male

DRUGS (6)
  1. SOLANAX [Suspect]
     Route: 048
  2. PEMOLINE [Concomitant]
     Route: 048
  3. AMOXAPINE [Concomitant]
     Route: 048
  4. RITALIN [Concomitant]
     Route: 048
  5. HALCION [Concomitant]
     Route: 048
  6. SILECE [Concomitant]

REACTIONS (2)
  - EPILEPSY [None]
  - MEMORY IMPAIRMENT [None]
